FAERS Safety Report 9792074 (Version 1)
Quarter: 2014Q1

REPORT INFORMATION
  Report Type: Spontaneous
  Country: US (occurrence: US)
  Receive Date: 20140102
  Receipt Date: 20140102
  Transmission Date: 20141002
  Serious: Yes (Hospitalization, Other)
  Sender: FDA-Public Use
  Company Number: US-PFIZER INC-2013373779

PATIENT
  Age: 60 Year
  Sex: Male

DRUGS (3)
  1. HALOPERIDOL [Suspect]
     Indication: AGGRESSION
     Dosage: 5 MG, UNK
     Route: 030
  2. LORAZEPAM [Interacting]
     Indication: AGGRESSION
     Dosage: 2 MG, UNK
     Route: 030
  3. KAVA-KAVA RHIZOMA [Interacting]
     Dosage: AT LEAST 3 TIMES A WEEK

REACTIONS (3)
  - Drug interaction [Unknown]
  - Atrial flutter [Unknown]
  - Hypoxia [Unknown]
